FAERS Safety Report 10241906 (Version 1)
Quarter: 2014Q2

REPORT INFORMATION
  Report Type: Spontaneous
  Country: JP (occurrence: JP)
  Receive Date: 20140617
  Receipt Date: 20140617
  Transmission Date: 20141212
  Serious: Yes (Hospitalization)
  Sender: FDA-Public Use
  Company Number: JP-GLAXOSMITHKLINE-B1001102A

PATIENT
  Age: 10 Year
  Sex: Female

DRUGS (4)
  1. ZOVIRAX [Suspect]
     Indication: PROPHYLAXIS
     Route: 042
  2. PREDNISOLONE [Concomitant]
     Route: 065
  3. CICLOSPORIN [Concomitant]
     Route: 065
  4. MYCOPHENOLATE MOFETIL [Concomitant]
     Route: 048

REACTIONS (6)
  - Renal disorder [Unknown]
  - Anuria [Unknown]
  - Fluid retention [Unknown]
  - Renal tubular disorder [Unknown]
  - Renal tubular necrosis [Unknown]
  - Blood creatinine increased [Unknown]
